FAERS Safety Report 4766915-X (Version None)
Quarter: 2005Q3

REPORT INFORMATION
  Report Type: 
  Country: None (occurrence: None)
  Receive Date: 20050913
  Receipt Date: 20050101
  Transmission Date: 20060218
  Serious: Yes (Hospitalization)
  Sender: FDA-Public Use
  Company Number: DE-BOEHRINGER INGELHEIM PHARMACEUTICALS, INC.-2005-DE-03381DE

PATIENT
  Sex: Male
  Weight: 66 kg

DRUGS (7)
  1. SPIRIVA [Suspect]
     Indication: BRONCHITIS CHRONIC
     Route: 055
  2. SPIRIVA [Suspect]
     Indication: EMPHYSEMA
  3. SPIRIVA [Suspect]
     Indication: CHRONIC OBSTRUCTIVE PULMONARY DISEASE
  4. DIGITOXIN TAB [Concomitant]
  5. THEOPHYLLINE [Concomitant]
  6. ASPIRIN [Concomitant]
  7. ACETYLCYSTEINE [Concomitant]

REACTIONS (2)
  - DYSPNOEA AT REST [None]
  - DYSPNOEA EXACERBATED [None]
